FAERS Safety Report 18601006 (Version 1)
Quarter: 2020Q4

REPORT INFORMATION
  Report Type: Spontaneous
  Country: CA (occurrence: CA)
  Receive Date: 20201210
  Receipt Date: 20201210
  Transmission Date: 20210114
  Serious: Yes (Other)
  Sender: FDA-Public Use
  Company Number: CA-BAYER-2020-266860

PATIENT
  Sex: Female

DRUGS (1)
  1. KYLEENA [Suspect]
     Active Substance: LEVONORGESTREL
     Dosage: 17.5?G PER DAY, CONTINUOUSLY
     Route: 015

REACTIONS (5)
  - Abdominal pain lower [None]
  - Blindness [None]
  - Dizziness [None]
  - Syncope [Recovered/Resolved]
  - Nausea [None]

NARRATIVE: CASE EVENT DATE: 20201202
